FAERS Safety Report 8784622 (Version 1)
Quarter: 2012Q4

REPORT INFORMATION
  Report Type: Spontaneous
  Country: None (occurrence: None)
  Receive Date: 20120831
  Receipt Date: 20120831
  Transmission Date: 20130627
  Serious: Yes (Hospitalization, Disabling)
  Sender: FDA-Public Use
  Company Number: AUR-APL-2012-03674

PATIENT
  Age: 61 Year
  Sex: Female

DRUGS (3)
  1. ALENDRONIC ACID (ALENDRONIC ACID) [Suspect]
     Indication: OSTEOPOROSIS
     Dosage: 1 IN 1 WK
     Route: 048
     Dates: end: 2012
  2. FERROUS SULPHATE (FERROUS SULPHATE) [Concomitant]
  3. LANSOPRAZOLE (LANSOPRAZOLE) [Concomitant]

REACTIONS (2)
  - Femur fracture [None]
  - Fall [None]
